FAERS Safety Report 24388527 (Version 1)
Quarter: 2024Q4

REPORT INFORMATION
  Report Type: Spontaneous
  Country: US (occurrence: None)
  Receive Date: 20241001
  Receipt Date: 20241001
  Transmission Date: 20250114
  Serious: No
  Sender: Public
  Company Number: None

PATIENT
  Age: 14 Day
  Sex: Male
  Weight: 2.72 kg

DRUGS (1)
  1. NIRSEVIMAB [Suspect]
     Active Substance: NIRSEVIMAB
     Route: 030

REACTIONS (3)
  - Product dispensing error [None]
  - Incorrect dose administered [None]
  - Prescribed overdose [None]

NARRATIVE: CASE EVENT DATE: 20240913
